FAERS Safety Report 6854825-3 (Version None)
Quarter: 2010Q3

REPORT INFORMATION
  Report Type: 
  Country: None (occurrence: None)
  Receive Date: 20100717
  Receipt Date: 20080310
  Transmission Date: 20110219
  Serious: No
  Sender: FDA-Public Use
  Company Number: US-PFIZER INC-2008004568

PATIENT
  Sex: Female
  Weight: 52.272 kg

DRUGS (2)
  1. CHANTIX [Suspect]
     Indication: SMOKING CESSATION THERAPY
     Route: 048
     Dates: start: 20071226
  2. DILANTIN [Concomitant]
     Indication: EPILEPSY
     Route: 048
     Dates: start: 19910101

REACTIONS (4)
  - BALANCE DISORDER [None]
  - DIZZINESS [None]
  - MALAISE [None]
  - VISION BLURRED [None]
